FAERS Safety Report 10489680 (Version 2)
Quarter: 2014Q4

REPORT INFORMATION
  Report Type: Report from Study
  Country: IT (occurrence: IT)
  Receive Date: 20141002
  Receipt Date: 20141007
  Transmission Date: 20150528
  Serious: Yes (Other)
  Sender: FDA-Public Use
  Company Number: IT-AMGEN-ITASP2014074465

PATIENT
  Sex: Female
  Weight: 67 kg

DRUGS (1)
  1. PROLIA [Suspect]
     Active Substance: DENOSUMAB
     Indication: OSTEOPOROSIS POSTMENOPAUSAL
     Route: 065

REACTIONS (12)
  - Hypertension [Unknown]
  - Pain [Unknown]
  - Rheumatoid arthritis [Unknown]
  - Surgery [Unknown]
  - Osteogenesis imperfecta [Unknown]
  - Body height decreased [Unknown]
  - Dental operation [Unknown]
  - Peripheral vascular disorder [Unknown]
  - Anxiety [Unknown]
  - Back pain [Unknown]
  - Gastrooesophageal reflux disease [Unknown]
  - Bone density decreased [Unknown]
